FAERS Safety Report 26150306 (Version 1)
Quarter: 2025Q4

REPORT INFORMATION
  Report Type: Spontaneous
  Country: US (occurrence: None)
  Receive Date: 20251210
  Receipt Date: 20251210
  Transmission Date: 20260117
  Serious: No
  Sender: FDA-CTU
  Company Number: None

PATIENT

DRUGS (1)
  1. RECLAST [Suspect]
     Active Substance: ZOLEDRONIC ACID
     Indication: Osteopenia
     Dosage: OTHER FREQUENCY : ANNUAL INFUSION;
     Route: 042
     Dates: start: 20251203

REACTIONS (2)
  - Tinnitus [None]
  - Vertigo [None]

NARRATIVE: CASE EVENT DATE: 20251205
